FAERS Safety Report 25867797 (Version 2)
Quarter: 2025Q4

REPORT INFORMATION
  Report Type: Spontaneous
  Country: US (occurrence: US)
  Receive Date: 20251001
  Receipt Date: 20251120
  Transmission Date: 20260118
  Serious: Yes (Other)
  Sender: AUROBINDO
  Company Number: US-AUROBINDO-AUR-APL-2025-048865

PATIENT
  Age: 79 Year
  Sex: Female

DRUGS (1)
  1. SIMVASTATIN [Suspect]
     Active Substance: SIMVASTATIN
     Indication: Blood cholesterol increased
     Dosage: UNK UNK, ONCE A DAY (ONCE DAILY IN EVENING)
     Route: 065
     Dates: start: 202504

REACTIONS (4)
  - Foreign body in throat [Unknown]
  - Dysphagia [Unknown]
  - Product after taste [Unknown]
  - Product use complaint [Unknown]
